FAERS Safety Report 9321923 (Version 2)
Quarter: 2013Q2

REPORT INFORMATION
  Report Type: Spontaneous
  Country: JP (occurrence: JP)
  Receive Date: 20130531
  Receipt Date: 20130619
  Transmission Date: 20140414
  Serious: Yes (Other)
  Sender: FDA-Public Use
  Company Number: JP-PFIZER INC-2013163504

PATIENT
  Age: 61 Year
  Sex: Female

DRUGS (1)
  1. DOXAZOSIN MESILATE [Suspect]
     Dosage: 1 MG, 4X/DAY
     Route: 048

REACTIONS (2)
  - Transient ischaemic attack [Recovered/Resolved]
  - Listless [Unknown]
